FAERS Safety Report 17438864 (Version 1)
Quarter: 2020Q1

REPORT INFORMATION
  Report Type: Spontaneous
  Country: US (occurrence: US)
  Receive Date: 20200205
  Receipt Date: 20200205
  Transmission Date: 20200409
  Serious: No
  Sender: FDA-Public Use
  Company Number: None

PATIENT
  Age: 20 Year
  Sex: Male

DRUGS (1)
  1. HUMIRA [Suspect]
     Active Substance: ADALIMUMAB
     Indication: CROHN^S DISEASE
     Dosage: ?          OTHER DOSE:ONE PEN;OTHER FREQUENCY:DAY 1 DAY 2 THEN E;?
     Route: 058
     Dates: start: 20200102

REACTIONS (3)
  - Fatigue [None]
  - Feeling abnormal [None]
  - Migraine [None]

NARRATIVE: CASE EVENT DATE: 20200102
